FAERS Safety Report 6656018-1 (Version None)
Quarter: 2010Q1

REPORT INFORMATION
  Report Type: 
  Country: None (occurrence: None)
  Receive Date: 20100329
  Receipt Date: 20100319
  Transmission Date: 20100710
  Serious: No
  Sender: FDA-Public Use
  Company Number: US-ROXANE LABORATORIES, INC.-2010-RO-00348RO

PATIENT
  Sex: Female

DRUGS (4)
  1. FLUTICASONE PROPIONATE [Suspect]
     Indication: SINUS CONGESTION
     Route: 055
     Dates: start: 20100201, end: 20100202
  2. ANTIHISTAMINE [Concomitant]
  3. AMARYL [Concomitant]
     Dosage: 2 MG
  4. BLOOD PRESSURE MEDICINE [Concomitant]
     Dosage: 5 MG

REACTIONS (1)
  - EPISTAXIS [None]
